FAERS Safety Report 13496514 (Version 2)
Quarter: 2017Q2

REPORT INFORMATION
  Report Type: Spontaneous
  Country: US (occurrence: US)
  Receive Date: 20170428
  Receipt Date: 20170522
  Transmission Date: 20170830
  Serious: No
  Sender: FDA-Public Use
  Company Number: US-009507513-1704USA002321

PATIENT
  Age: 18 Year
  Sex: Female
  Weight: 82.54 kg

DRUGS (1)
  1. NEXPLANON [Suspect]
     Active Substance: ETONOGESTREL
     Indication: CONTRACEPTION
     Dosage: 1 IMPLANT, EVERY 3 YEARS. ANATOMICAL LOCATION: RIGHT ARM
     Route: 059
     Dates: start: 20160216

REACTIONS (4)
  - Device kink [Not Recovered/Not Resolved]
  - Feeling hot [Unknown]
  - Migration of implanted drug [Not Recovered/Not Resolved]
  - Tenderness [Unknown]
